FAERS Safety Report 9831495 (Version 3)
Quarter: 2014Q1

REPORT INFORMATION
  Report Type: Spontaneous
  Country: US (occurrence: US)
  Receive Date: 20140121
  Receipt Date: 20140218
  Transmission Date: 20141002
  Serious: Yes (Disabling, Other)
  Sender: FDA-Public Use
  Company Number: US-ORION CORPORATION ORION PHARMA-ENTC2014-0013

PATIENT
  Age: 59 Year
  Sex: Female
  Weight: 59 kg

DRUGS (2)
  1. CARBIDOPA, LEVODOPA AND ENTACAPONE TABLETS [Suspect]
     Indication: PARKINSON^S DISEASE
     Dosage: ONE TABLET IN MORNING AND ONE IN EVENING; STRENGTH: 100/25/200 MG
     Route: 048
     Dates: start: 20131215, end: 201401
  2. CARBIDOPA, LEVODOPA AND ENTACAPONE TABLETS [Suspect]
     Dosage: ONE TABLET AT NOON; STRENGTH: 75/18.75/200 MG
     Route: 048
     Dates: start: 20131215, end: 201401

REACTIONS (10)
  - Drug ineffective [Unknown]
  - Product quality issue [Unknown]
  - Product substitution issue [Unknown]
  - Abasia [Recovered/Resolved]
  - Impaired work ability [Recovered/Resolved]
  - Fall [Recovered/Resolved]
  - Feeling abnormal [Recovered/Resolved]
  - Pain [Recovered/Resolved]
  - Insomnia [Recovered/Resolved]
  - Coordination abnormal [Recovered/Resolved]
